FAERS Safety Report 10263590 (Version 1)
Quarter: 2014Q2

REPORT INFORMATION
  Report Type: Spontaneous
  Country: FR (occurrence: FR)
  Receive Date: 20140626
  Receipt Date: 20140626
  Transmission Date: 20141212
  Serious: Yes (Other)
  Sender: FDA-Public Use
  Company Number: PHHY2014FR078922

PATIENT
  Sex: Female

DRUGS (4)
  1. LEPONEX [Suspect]
     Indication: SCHIZOAFFECTIVE DISORDER
     Dosage: 400 MG, UNK
     Route: 048
     Dates: start: 20120423, end: 201401
  2. LEPONEX [Suspect]
     Dosage: 200 MG, UNK
     Route: 048
     Dates: start: 201401, end: 2014
  3. VENLAFAXINE [Concomitant]
     Indication: SCHIZOAFFECTIVE DISORDER
     Dosage: 150 MG, UNK
  4. LAMICTAL [Concomitant]
     Indication: SCHIZOAFFECTIVE DISORDER
     Dosage: 300 MG, UNK

REACTIONS (2)
  - Gestational diabetes [Unknown]
  - Maternal exposure during pregnancy [Unknown]
